FAERS Safety Report 5389829-3 (Version None)
Quarter: 2007Q3

REPORT INFORMATION
  Report Type: 
  Country: None (occurrence: None)
  Receive Date: 20070718
  Receipt Date: 20070712
  Transmission Date: 20080115
  Serious: Yes (Other)
  Sender: FDA-Public Use
  Company Number: PHEH2007US09923

PATIENT
  Age: 50 Year
  Sex: Female
  Weight: 90.702 kg

DRUGS (5)
  1. ENABLEX [Suspect]
     Indication: HYPERTONIC BLADDER
     Dosage: 7.5 MG, QD
  2. ENABLEX [Suspect]
     Dosage: 15 MG, QD
  3. DIOVAN [Concomitant]
  4. PROCARDIA [Concomitant]
  5. PRAVACHOL [Concomitant]

REACTIONS (1)
  - CONVULSION [None]
